FAERS Safety Report 17375481 (Version 3)
Quarter: 2021Q2

REPORT INFORMATION
  Report Type: Spontaneous
  Country: US (occurrence: US)
  Receive Date: 20200205
  Receipt Date: 20210415
  Transmission Date: 20210716
  Serious: Yes (Other)
  Sender: FDA-Public Use
  Company Number: US-PFIZER INC-2020049924

PATIENT
  Age: 55 Year
  Sex: Female
  Weight: 70 kg

DRUGS (4)
  1. TENORMIN [Suspect]
     Active Substance: ATENOLOL
     Indication: MULTIPLE CHEMICAL SENSITIVITY
     Dosage: 50 MG, DAILY
  2. SYNTHROID [Suspect]
     Active Substance: LEVOTHYROXINE SODIUM
     Indication: HYPOTHYROIDISM
     Dosage: 25 MG, DAILY
  3. XANAX [Suspect]
     Active Substance: ALPRAZOLAM
     Indication: MULTIPLE CHEMICAL SENSITIVITY
     Dosage: 0.25 MG, 3X/DAY
  4. CLARITONE [Suspect]
     Active Substance: BENZALKONIUM CHLORIDE
     Indication: HYPERSENSITIVITY
     Dosage: 10 MG, UNK (OCCASSIONALLY)

REACTIONS (2)
  - Cataract [Not Recovered/Not Resolved]
  - Off label use [Unknown]
